FAERS Safety Report 19397885 (Version 2)
Quarter: 2021Q3

REPORT INFORMATION
  Report Type: Spontaneous
  Country: US (occurrence: US)
  Receive Date: 20210610
  Receipt Date: 20210709
  Transmission Date: 20211014
  Serious: No
  Sender: FDA-Public Use
  Company Number: US-ASTRAZENECA-2021A459451

PATIENT
  Age: 68 Year
  Sex: Male
  Weight: 68 kg

DRUGS (1)
  1. BYDUREON BCISE [Suspect]
     Active Substance: EXENATIDE
     Indication: TYPE 2 DIABETES MELLITUS
     Route: 058
     Dates: start: 2020

REACTIONS (11)
  - Weight decreased [Unknown]
  - Glycosylated haemoglobin increased [Unknown]
  - Administration site hypertrophy [Recovered/Resolved]
  - Drug delivery system issue [Unknown]
  - Intentional device misuse [Recovered/Resolved]
  - Device malfunction [Unknown]
  - Decreased appetite [Not Recovered/Not Resolved]
  - Incorrect dose administered [Recovered/Resolved]
  - Device leakage [Unknown]
  - Nausea [Unknown]
  - Hiccups [Unknown]

NARRATIVE: CASE EVENT DATE: 2020
